FAERS Safety Report 5162955-X (Version None)
Quarter: 2006Q4

REPORT INFORMATION
  Report Type: 
  Country: None (occurrence: None)
  Receive Date: 20061201
  Receipt Date: 20061107
  Transmission Date: 20070319
  Serious: Yes (Life-Threatening, Other)
  Sender: FDA-Public Use
  Company Number: GB-BRISTOL-MYERS SQUIBB COMPANY-13571542

PATIENT
  Age: 54 Year
  Sex: Female

DRUGS (21)
  1. ABILIFY [Suspect]
     Indication: SCHIZOAFFECTIVE DISORDER
     Route: 048
     Dates: start: 20061027, end: 20061106
  2. GTN SPRAY [Interacting]
  3. VALPROATE SODIUM [Concomitant]
     Indication: BIPOLAR DISORDER
  4. TEMAZEPAM [Concomitant]
     Route: 048
  5. PROCYCLIDINE HYDROCHLORIDE 2MG TAB [Concomitant]
     Dosage: DURATION OF THERAPY:  LONGTERM
  6. TRAZODONE HCL [Concomitant]
     Route: 048
  7. ZOLPIDEM TARTRATE [Concomitant]
     Route: 048
     Dates: start: 20060911, end: 20061027
  8. ATENOLOL [Concomitant]
  9. MEBEVERINE HCL [Concomitant]
  10. ACETAMINOPHEN [Concomitant]
  11. SIMVASTATIN [Concomitant]
  12. METFORMIN [Concomitant]
  13. LEVOTHYROXINE SODIUM [Concomitant]
  14. GASTROCOTE [Concomitant]
  15. WARFARIN SODIUM [Concomitant]
  16. ACETAMINOPHEN W/ CODEINE [Concomitant]
  17. ASPIRIN [Concomitant]
  18. LOPERAMIDE [Concomitant]
  19. CODEINE PHOSPHATE [Concomitant]
  20. ISPAGHULA [Concomitant]
  21. AMISULPRIDE [Concomitant]
     Dates: start: 20060705, end: 20061027

REACTIONS (13)
  - BACK PAIN [None]
  - DEPRESSED MOOD [None]
  - DRUG INTERACTION [None]
  - DYSPNOEA [None]
  - FATIGUE [None]
  - FEELING ABNORMAL [None]
  - HEADACHE [None]
  - IRRITABILITY [None]
  - MALAISE [None]
  - MYOCARDIAL INFARCTION [None]
  - NECK PAIN [None]
  - PSYCHOTIC DISORDER [None]
  - WEIGHT DECREASED [None]
